FAERS Safety Report 7518172-9 (Version None)
Quarter: 2011Q2

REPORT INFORMATION
  Report Type: 
  Country: None (occurrence: None)
  Receive Date: 20110531
  Receipt Date: 20110531
  Transmission Date: 20111010
  Serious: Yes (Other)
  Sender: FDA-Public Use
  Company Number: None

PATIENT
  Sex: Female
  Weight: 105.2345 kg

DRUGS (2)
  1. DILTIAZEM [Suspect]
     Indication: HYPERTENSION
     Dosage: 1 QDAY PO
     Route: 048
     Dates: start: 20070324
  2. DILTIAZEM [Suspect]
     Indication: TACHYCARDIA
     Dosage: 1 QDAY PO
     Route: 048
     Dates: start: 20070324

REACTIONS (2)
  - DIZZINESS [None]
  - PALPITATIONS [None]
